FAERS Safety Report 14047232 (Version 1)
Quarter: 2017Q4

REPORT INFORMATION
  Report Type: Spontaneous
  Country: US (occurrence: US)
  Receive Date: 20171005
  Receipt Date: 20171005
  Transmission Date: 20180321
  Serious: No
  Sender: FDA-Public Use
  Company Number: US-INDIVIOR LIMITED-INDV-100083-2017

PATIENT
  Age: 61 Year
  Sex: Female

DRUGS (1)
  1. SUBOXONE [Suspect]
     Active Substance: BUPRENORPHINE HYDROCHLORIDE\NALOXONE HYDROCHLORIDE
     Indication: DRUG USE DISORDER
     Dosage: 2MG, TWICE DAILY
     Route: 065
     Dates: start: 2014

REACTIONS (14)
  - Product use issue [Unknown]
  - Therapy cessation [Recovered/Resolved]
  - Alopecia [Unknown]
  - Drug withdrawal syndrome [Unknown]
  - Hypertension [Unknown]
  - Dental caries [Unknown]
  - Dissociation [Unknown]
  - Confusional state [Unknown]
  - Agitation [Unknown]
  - Pain [Unknown]
  - Oral candidiasis [Unknown]
  - Feeling abnormal [Unknown]
  - Drug ineffective for unapproved indication [Unknown]
  - Intentional underdose [Unknown]
